FAERS Safety Report 5929254-7 (Version None)
Quarter: 2008Q4

REPORT INFORMATION
  Report Type: 
  Country: None (occurrence: None)
  Receive Date: 20081023
  Receipt Date: 20081023
  Transmission Date: 20090506
  Serious: Yes (Hospitalization)
  Sender: FDA-Public Use
  Company Number: None

PATIENT
  Age: 25 Year
  Sex: Female
  Weight: 68.0396 kg

DRUGS (1)
  1. SUDAFED NASAL DECONGESTANT [Suspect]
     Indication: MULTIPLE ALLERGIES
     Dosage: 4 TABLETS DAILY FOR MONTHS PO
     Route: 048
     Dates: start: 19941001, end: 20051001

REACTIONS (3)
  - DRUG EXPOSURE DURING PREGNANCY [None]
  - INDUCED LABOUR [None]
  - PREGNANCY INDUCED HYPERTENSION [None]
